FAERS Safety Report 9151005 (Version 3)
Quarter: 2013Q3

REPORT INFORMATION
  Report Type: Spontaneous
  Country: US (occurrence: US)
  Receive Date: 20130308
  Receipt Date: 20130812
  Transmission Date: 20140515
  Serious: Yes (Hospitalization, Other)
  Sender: FDA-Public Use
  Company Number: US-CUBIST PHARMACEUTICAL, INC.-2013CBST000152

PATIENT
  Sex: 0

DRUGS (7)
  1. ENTEREG [Suspect]
     Indication: COLECTOMY
     Dosage: 12 MG, QD
     Route: 048
     Dates: start: 20130129, end: 20130204
  2. ERTAPENEM [Concomitant]
     Indication: ANTIBIOTIC THERAPY
     Dosage: 1 G, X1
     Route: 042
     Dates: start: 20130129, end: 20130129
  3. LOVENOX [Concomitant]
     Indication: THROMBOSIS PROPHYLAXIS
     Dosage: 30 MG, BID
     Route: 058
     Dates: start: 20130129, end: 20130206
  4. OXYCODONE [Concomitant]
     Indication: PROCEDURAL PAIN
     Dosage: 5 MG, PRN
     Route: 048
     Dates: start: 20130129, end: 20130201
  5. DILAUDID [Concomitant]
     Indication: PROCEDURAL PAIN
     Dosage: 1 MG, Q4H
     Route: 042
     Dates: start: 20130129, end: 20130130
  6. LOPRESSOR [Concomitant]
     Indication: HYPERTENSION
     Dosage: 5 MG, PRN
     Route: 042
     Dates: start: 20130129, end: 20130204
  7. CITALOPRAM [Concomitant]
     Indication: DEPRESSION
     Dosage: 20 MG, QD
     Route: 048
     Dates: start: 20130201

REACTIONS (4)
  - Hallucinations, mixed [Recovered/Resolved]
  - Speech disorder [Recovered/Resolved]
  - Paranoia [Recovered/Resolved]
  - Agitation [Recovered/Resolved]
